FAERS Safety Report 6075322-1 (Version None)
Quarter: 2009Q1

REPORT INFORMATION
  Report Type: 
  Country: None (occurrence: None)
  Receive Date: 20090121
  Receipt Date: 20080219
  Transmission Date: 20090719
  Serious: Yes (Hospitalization, Other)
  Sender: FDA-Public Use
  Company Number: US-WYE-H02670608

PATIENT
  Age: 70 Year
  Sex: Female
  Weight: 65.83 kg

DRUGS (4)
  1. PREMPRO [Suspect]
     Indication: OSTEOPOROSIS
     Dosage: ORAL
     Route: 048
     Dates: start: 19930101
  2. PREMPRO [Suspect]
     Indication: PROPHYLAXIS
     Dosage: ORAL
     Route: 048
     Dates: start: 19930101
  3. ATENOLOL [Concomitant]
  4. COLESTID [Concomitant]

REACTIONS (1)
  - OVARIAN CANCER [None]
